FAERS Safety Report 4607863-5 (Version None)
Quarter: 2005Q1

REPORT INFORMATION
  Report Type: 
  Country: None (occurrence: None)
  Receive Date: 20050310
  Receipt Date: 20050225
  Transmission Date: 20050727
  Serious: Yes (Hospitalization, Other)
  Sender: FDA-Public Use
  Company Number: 2005039337

PATIENT
  Sex: Female

DRUGS (4)
  1. AMLODIPINE [Suspect]
     Indication: HYPERTENSION
  2. PROPRANOLOL [Suspect]
     Indication: HYPERTENSION
  3. BROMAZEPAM (BROMAZEPAM) [Concomitant]
  4. POTASSIUM CHLORIDE [Concomitant]

REACTIONS (2)
  - ADRENAL ADENOMA [None]
  - HYPOKALAEMIA [None]
